FAERS Safety Report 11077966 (Version 2)
Quarter: 2017Q2

REPORT INFORMATION
  Report Type: Spontaneous
  Country: FR (occurrence: FR)
  Receive Date: 20150430
  Receipt Date: 20170515
  Transmission Date: 20170829
  Serious: Yes (Other)
  Sender: FDA-Public Use
  Company Number: FR-SUN PHARMACEUTICAL INDUSTRIES LTD-2015R1-95691

PATIENT
  Age: 80 Year
  Sex: Male

DRUGS (6)
  1. MYCOPHENOLATE MOPHETIL [Concomitant]
     Indication: TEMPORAL ARTERITIS
     Dosage: UNK
     Route: 065
  2. ETANERCEPT [Concomitant]
     Active Substance: ETANERCEPT
     Indication: TEMPORAL ARTERITIS
     Dosage: AT 3 THEN 5 MG/KG FOR 3 MONTHS
     Route: 065
  3. PREDNISONE. [Suspect]
     Active Substance: PREDNISONE
     Indication: TEMPORAL ARTERITIS
     Dosage: 30 MG, DAILY
     Route: 065
     Dates: start: 200506
  4. METHOTREXATE. [Concomitant]
     Active Substance: METHOTREXATE
     Indication: TEMPORAL ARTERITIS
     Dosage: UNK
     Route: 065
     Dates: start: 200708
  5. PREDNISONE. [Suspect]
     Active Substance: PREDNISONE
     Dosage: 60 MG, DAILY
     Route: 065
  6. AZATHIOPRINE. [Concomitant]
     Active Substance: AZATHIOPRINE
     Indication: TEMPORAL ARTERITIS
     Dosage: UNK
     Route: 065
     Dates: start: 200606

REACTIONS (3)
  - Drug ineffective [Unknown]
  - Osteoporotic fracture [Unknown]
  - Tendon rupture [Unknown]
